FAERS Safety Report 11544148 (Version 1)
Quarter: 2015Q3

REPORT INFORMATION
  Report Type: Spontaneous
  Country: US (occurrence: US)
  Receive Date: 20150924
  Receipt Date: 20150924
  Transmission Date: 20151125
  Serious: No
  Sender: FDA-Public Use
  Company Number: US-ASTRAZENECA-2015SE89719

PATIENT
  Age: 712 Month
  Sex: Female
  Weight: 59.9 kg

DRUGS (1)
  1. ANASTROZOLE. [Suspect]
     Active Substance: ANASTROZOLE
     Indication: NEOPLASM MALIGNANT
     Route: 048
     Dates: start: 201508

REACTIONS (2)
  - Sciatica [Unknown]
  - Arthralgia [Unknown]

NARRATIVE: CASE EVENT DATE: 201508
